FAERS Safety Report 5427110-4 (Version None)
Quarter: 2007Q3

REPORT INFORMATION
  Report Type: 
  Country: None (occurrence: None)
  Receive Date: 20070823
  Receipt Date: 20070823
  Transmission Date: 20080115
  Serious: Yes (Hospitalization)
  Sender: FDA-Public Use
  Company Number: None

PATIENT
  Age: 46 Year
  Sex: Male
  Weight: 88 kg

DRUGS (7)
  1. MYCOPHENOLATE MOFETIL [Suspect]
     Indication: IMMUNOSUPPRESSION
     Dosage: 500 MG BY MOUTH 2X/DAY
     Route: 048
     Dates: start: 20040217, end: 20061211
  2. CLOPIDOGREL [Concomitant]
  3. M.V.I. [Concomitant]
  4. TACROLIMUS [Concomitant]
  5. PREDNISONE [Concomitant]
  6. DOXACOR [Concomitant]
  7. CALCIFEROL [Concomitant]

REACTIONS (1)
  - DIARRHOEA [None]
